FAERS Safety Report 6999979-3 (Version None)
Quarter: 2010Q3

REPORT INFORMATION
  Report Type: 
  Country: None (occurrence: None)
  Receive Date: 20100920
  Receipt Date: 20100301
  Transmission Date: 20110219
  Serious: Yes (Other)
  Sender: FDA-Public Use
  Company Number: US-ASTRAZENECA-2009UW20645

PATIENT
  Sex: Male

DRUGS (6)
  1. SEROQUEL [Suspect]
     Dosage: 100 TO 300 MG
     Route: 048
     Dates: start: 20070612
  2. ALPRAZOLAM [Concomitant]
     Dosage: 0.25 TO 1 MG
     Dates: start: 20070619
  3. MORPHINE SUL ER [Concomitant]
     Dosage: 100 MG TO 200 MG
     Dates: start: 20070516
  4. FENTANYL CITRATE [Concomitant]
     Dosage: 25- 100 MCG
     Dates: start: 20070614
  5. DIAZEPAM [Concomitant]
     Dosage: 2 TO 5 MG
     Dates: start: 20070516
  6. HYDROMORPHONE HCL [Concomitant]
     Dosage: 4 TO 8 MG
     Dates: start: 20080105

REACTIONS (3)
  - DIABETES MELLITUS [None]
  - KETOACIDOSIS [None]
  - PANCREATITIS [None]
